FAERS Safety Report 12011049 (Version 3)
Quarter: 2016Q1

REPORT INFORMATION
  Report Type: Other
  Country: US (occurrence: US)
  Receive Date: 20160205
  Receipt Date: 20160329
  Transmission Date: 20160526
  Serious: Yes (Death, Hospitalization, Other)
  Sender: FDA-Public Use
  Company Number: US-ACORDA-ACO_121173_2016

PATIENT
  Age: 49 Year
  Sex: Female
  Weight: 70.3 kg

DRUGS (14)
  1. AUBAGIO [Concomitant]
     Active Substance: TERIFLUNOMIDE
     Indication: PRODUCT USED FOR UNKNOWN INDICATION
     Dosage: 1 DF, QAM
     Route: 065
  2. BACLOFEN. [Concomitant]
     Active Substance: BACLOFEN
     Indication: PRODUCT USED FOR UNKNOWN INDICATION
     Dosage: 20 MG, TID
  3. LEXAPRO [Concomitant]
     Active Substance: ESCITALOPRAM OXALATE
     Indication: PRODUCT USED FOR UNKNOWN INDICATION
     Dosage: 1 DF, QD
  4. COMPAZINE [Concomitant]
     Active Substance: PROCHLORPERAZINE MALEATE
     Indication: PRODUCT USED FOR UNKNOWN INDICATION
     Dosage: 1 DF, Q 8 HRS
     Route: 048
  5. IBRANCE [Concomitant]
     Active Substance: PALBOCICLIB
     Indication: PRODUCT USED FOR UNKNOWN INDICATION
     Dosage: UNK
     Route: 065
  6. DICLOFENAC [Concomitant]
     Active Substance: DICLOFENAC
     Indication: PRODUCT USED FOR UNKNOWN INDICATION
     Dosage: 1 DF, Q 8 HRS
  7. OXYBUTYNIN CHLORIDE. [Concomitant]
     Active Substance: OXYBUTYNIN CHLORIDE
     Indication: PRODUCT USED FOR UNKNOWN INDICATION
     Dosage: 5 MG, QD
  8. GABAPENTIN. [Concomitant]
     Active Substance: GABAPENTIN
     Indication: PRODUCT USED FOR UNKNOWN INDICATION
     Dosage: 400 MG, TID
     Route: 048
  9. FENTANYL. [Concomitant]
     Active Substance: FENTANYL
     Indication: PRODUCT USED FOR UNKNOWN INDICATION
     Dosage: 75 ?G, Q 72 HRS
  10. ALBUTEROL. [Concomitant]
     Active Substance: ALBUTEROL
     Indication: PRODUCT USED FOR UNKNOWN INDICATION
     Dosage: UNK
     Route: 065
  11. DILAUDID [Concomitant]
     Active Substance: HYDROMORPHONE HYDROCHLORIDE
     Indication: PRODUCT USED FOR UNKNOWN INDICATION
     Dosage: 2 MG,  Q 4HRS PRN
  12. ZOFRAN [Concomitant]
     Active Substance: ONDANSETRON HYDROCHLORIDE
     Indication: PRODUCT USED FOR UNKNOWN INDICATION
     Dosage: 4 MG, 1 TAB 4-6HRS PRN
  13. AMPYRA [Suspect]
     Active Substance: DALFAMPRIDINE
     Indication: MULTIPLE SCLEROSIS
     Dosage: 10 MG, BID
     Route: 065
     Dates: start: 201306
  14. MARINOL [Concomitant]
     Active Substance: DRONABINOL
     Indication: PRODUCT USED FOR UNKNOWN INDICATION
     Dosage: 5 MG, TID
     Route: 048

REACTIONS (34)
  - Pneumonia [Unknown]
  - Chronic obstructive pulmonary disease [Unknown]
  - Thrombocytopenia [Unknown]
  - Invasive ductal breast carcinoma [Unknown]
  - Cervical dysplasia [Unknown]
  - Pneumonia [Unknown]
  - Vomiting [Unknown]
  - Urinary incontinence [Unknown]
  - Plantar fascial fibromatosis [Unknown]
  - Fall [Unknown]
  - Head injury [Unknown]
  - Mental status changes [Unknown]
  - Breast pain [Unknown]
  - Somnolence [Unknown]
  - Dysphagia [Unknown]
  - Nausea [Unknown]
  - Anxiety [Unknown]
  - Depression [Unknown]
  - Petechiae [Unknown]
  - Death [Fatal]
  - Breast cancer metastatic [Unknown]
  - Mass [Unknown]
  - Oedema peripheral [Unknown]
  - Cardiomegaly [Unknown]
  - Myocardial infarction [Unknown]
  - Discomfort [Unknown]
  - Gait disturbance [Unknown]
  - Dysarthria [Unknown]
  - Sepsis [Unknown]
  - Confusional state [Unknown]
  - Pain [Unknown]
  - Anal incontinence [Unknown]
  - Memory impairment [Unknown]
  - Tachycardia [Unknown]

NARRATIVE: CASE EVENT DATE: 2015
